FAERS Safety Report 7576148-X (Version None)
Quarter: 2011Q2

REPORT INFORMATION
  Report Type: 
  Country: None (occurrence: None)
  Receive Date: 20110623
  Receipt Date: 20110623
  Transmission Date: 20111010
  Serious: Yes (Other)
  Sender: FDA-Public Use
  Company Number: None

PATIENT
  Age: 42 Year
  Sex: Female
  Weight: 66.6788 kg

DRUGS (1)
  1. CREST W/ FLUORIDE [Suspect]
     Indication: DENTAL CLEANING
     Dosage: TOOTHBRUSH TWICE DAILY PO
     Route: 004
     Dates: start: 20110604, end: 20110611

REACTIONS (2)
  - ORAL DISORDER [None]
  - ORAL CANDIDIASIS [None]
